FAERS Safety Report 5184890-3 (Version None)
Quarter: 2006Q4

REPORT INFORMATION
  Report Type: 
  Country: None (occurrence: None)
  Receive Date: 20061220
  Receipt Date: 20060505
  Transmission Date: 20070319
  Serious: No
  Sender: FDA-Public Use
  Company Number: US-GLAXOSMITHKLINE-A0604451A

PATIENT
  Age: 62 Year
  Sex: Female

DRUGS (1)
  1. NICODERM CQ [Suspect]

REACTIONS (5)
  - APPLICATION SITE PRURITUS [None]
  - CRYING [None]
  - DYSPNOEA [None]
  - MOOD ALTERED [None]
  - NICOTINE DEPENDENCE [None]
